FAERS Safety Report 24014180 (Version 1)
Quarter: 2024Q2

REPORT INFORMATION
  Report Type: Report from Study
  Country: GB (occurrence: GB)
  Receive Date: 20240626
  Receipt Date: 20240626
  Transmission Date: 20240716
  Serious: Yes (Other)
  Sender: FDA-Public Use
  Company Number: GB-IPSEN Group, Research and Development-2022-01574

PATIENT
  Sex: Male

DRUGS (1)
  1. LANREOTIDE ACETATE [Suspect]
     Active Substance: LANREOTIDE ACETATE
     Indication: Neuroendocrine tumour
     Dosage: 120MG/0.5ML

REACTIONS (12)
  - Urinary tract infection [Unknown]
  - Weight decreased [Unknown]
  - Product dose omission issue [Unknown]
  - Constipation [Unknown]
  - Abdominal pain upper [Unknown]
  - Urinary tract disorder [Not Recovered/Not Resolved]
  - Haemoglobin decreased [Unknown]
  - Rosacea [Unknown]
  - Diarrhoea [Recovering/Resolving]
  - Rash [Not Recovered/Not Resolved]
  - Musculoskeletal pain [Unknown]
  - Off label use [Unknown]
